FAERS Safety Report 11316592 (Version 2)
Quarter: 2015Q3

REPORT INFORMATION
  Report Type: Spontaneous
  Country: FR (occurrence: FR)
  Receive Date: 20150728
  Receipt Date: 20150901
  Transmission Date: 20151125
  Serious: Yes (Life-Threatening, Hospitalization, Other)
  Sender: FDA-Public Use
  Company Number: FR-ELI_LILLY_AND_COMPANY-FR201507006507

PATIENT
  Age: 35 Year
  Sex: Female

DRUGS (9)
  1. DEPAMINE [Suspect]
     Active Substance: PENICILLAMINE
     Indication: PRODUCT USED FOR UNKNOWN INDICATION
     Dosage: 4.8 G, SINGLE
     Route: 048
     Dates: start: 20150614, end: 20150614
  2. MYOLASTAN [Suspect]
     Active Substance: TETRAZEPAM
     Indication: PRODUCT USED FOR UNKNOWN INDICATION
     Dosage: 20 DF, SINGLE
     Route: 048
     Dates: start: 20150614, end: 20150614
  3. NOCERTONE [Suspect]
     Active Substance: OXETORONE
     Indication: PRODUCT USED FOR UNKNOWN INDICATION
     Dosage: 1.8 G, SINGLE
     Route: 048
     Dates: start: 20150614, end: 20150614
  4. SEROPLEX [Suspect]
     Active Substance: ESCITALOPRAM OXALATE
     Indication: PRODUCT USED FOR UNKNOWN INDICATION
     Dosage: 560 MG, SINGLE
     Route: 048
     Dates: start: 20150614, end: 20150614
  5. CYMBALTA [Suspect]
     Active Substance: DULOXETINE HYDROCHLORIDE
     Indication: PRODUCT USED FOR UNKNOWN INDICATION
     Dosage: 180 MG, SINGLE
     Route: 048
     Dates: start: 20150614, end: 20150614
  6. PARACETAMOL [Suspect]
     Active Substance: ACETAMINOPHEN
     Indication: PRODUCT USED FOR UNKNOWN INDICATION
     Dosage: 64 G, SINGLE
     Route: 048
     Dates: start: 20150614, end: 20150614
  7. XANAX [Suspect]
     Active Substance: ALPRAZOLAM
     Indication: PRODUCT USED FOR UNKNOWN INDICATION
     Dosage: 7.5 MG, SINGLE
     Route: 048
     Dates: start: 20150614, end: 20150614
  8. SELOKEN                            /00376902/ [Suspect]
     Active Substance: METOPROLOL TARTRATE
     Indication: PRODUCT USED FOR UNKNOWN INDICATION
     Dosage: 3 G, SINGLE
     Route: 048
     Dates: start: 20150614, end: 20150614
  9. KETUM [Suspect]
     Active Substance: KETOPROFEN
     Indication: PRODUCT USED FOR UNKNOWN INDICATION
     Dosage: 3 G, SINGLE
     Route: 048
     Dates: start: 20150614, end: 20150614

REACTIONS (8)
  - Coagulopathy [Recovering/Resolving]
  - Intentional overdose [Unknown]
  - Cell death [Unknown]
  - Bone marrow failure [Recovered/Resolved]
  - Renal failure [Recovering/Resolving]
  - Cardiogenic shock [Unknown]
  - Hepatitis [Recovering/Resolving]
  - Rhabdomyolysis [Unknown]

NARRATIVE: CASE EVENT DATE: 20150614
